FAERS Safety Report 9573775 (Version 1)
Quarter: 2013Q4

REPORT INFORMATION
  Report Type: Spontaneous
  Country: FR (occurrence: FR)
  Receive Date: 20131001
  Receipt Date: 20131001
  Transmission Date: 20140711
  Serious: Yes (Life-Threatening)
  Sender: FDA-Public Use
  Company Number: FR-PFIZER INC-2013277924

PATIENT
  Age: 58 Year
  Sex: Female

DRUGS (5)
  1. AROMASINE [Suspect]
     Indication: BREAST CANCER
     Dosage: UNK, 1X/DAY
     Route: 048
     Dates: start: 2011, end: 201308
  2. TAHOR [Concomitant]
     Indication: HYPERCHOLESTEROLAEMIA
     Dosage: 10 MG, 1X/DAY
     Route: 048
  3. RAMIPRIL [Concomitant]
     Indication: HYPERTENSION
     Dosage: 10 MG, 1X/DAY
     Route: 048
  4. BISOPROLOL FUMARATE [Concomitant]
     Indication: HYPERTENSION
     Dosage: 5 MG, 1X/DAY
     Route: 048
  5. KARDEGIC [Concomitant]
     Dosage: 160 MG, 1X/DAY
     Route: 048

REACTIONS (1)
  - Cerebrovascular accident [Recovering/Resolving]
